FAERS Safety Report 6529272-4 (Version None)
Quarter: 2010Q1

REPORT INFORMATION
  Report Type: 
  Country: None (occurrence: None)
  Receive Date: 20100107
  Receipt Date: 20091207
  Transmission Date: 20100710
  Serious: No
  Sender: FDA-Public Use
  Company Number: US-BAYER-200937011NA

PATIENT

DRUGS (2)
  1. BETAPACE [Suspect]
     Indication: DRUG USE FOR UNKNOWN INDICATION
  2. BETAPACE AF [Suspect]
     Indication: DRUG USE FOR UNKNOWN INDICATION

REACTIONS (1)
  - NO ADVERSE EVENT [None]
